FAERS Safety Report 13423738 (Version 2)
Quarter: 2017Q2

REPORT INFORMATION
  Report Type: Spontaneous
  Country: AU (occurrence: AU)
  Receive Date: 20170410
  Receipt Date: 20170413
  Transmission Date: 20170830
  Serious: Yes (Other)
  Sender: FDA-Public Use
  Company Number: AU-PFIZER INC-2017151511

PATIENT
  Age: 27 Year
  Sex: Male
  Weight: 65 kg

DRUGS (7)
  1. MAGNESIUM [Concomitant]
     Active Substance: MAGNESIUM
     Indication: MUSCLE RELAXANT THERAPY
     Dosage: UNK
  2. HYDRASTIS CANADENSIS [Suspect]
     Active Substance: HERBALS\HOMEOPATHICS\GOLDENSEAL
     Indication: DEPRESSION
     Dosage: 1-2 AT NIGHT (1X/DAY)
  3. CIRCADIN [Concomitant]
     Active Substance: MELATONIN
     Indication: INSOMNIA
     Dosage: 2 MG, 1X/DAY ( EVERY EVENING)
     Dates: start: 20130517
  4. HYPERICUM PERFORATUM [Concomitant]
     Active Substance: HYPERICUM PERFORATUM
     Indication: DEPRESSION
     Dosage: SPORADIC
  5. STILNOX [Interacting]
     Active Substance: ZOLPIDEM TARTRATE
     Indication: INSOMNIA
     Dosage: 6.25 MG, AS NEEDED
     Dates: start: 20110916
  6. GABA [Concomitant]
     Active Substance: HOMEOPATHICS
     Indication: ANXIETY
     Dosage: 1 DF AT NIGHT, 1X/DAY (SPORADIC)
  7. ZOLOFT [Suspect]
     Active Substance: SERTRALINE HYDROCHLORIDE
     Indication: DEPRESSION
     Dosage: 50 MG, 1X/DAY (AT NIGHT)
     Dates: start: 20140209

REACTIONS (25)
  - Glassy eyes [Unknown]
  - Impaired driving ability [Unknown]
  - Accidental overdose [None]
  - Poisoning [Unknown]
  - Lacrimation increased [Unknown]
  - Dysarthria [Unknown]
  - Ocular hyperaemia [Unknown]
  - Overdose [Unknown]
  - Somnambulism [Unknown]
  - Malaise [Unknown]
  - Pallor [Unknown]
  - Confusional state [Unknown]
  - Vomiting [None]
  - Disorientation [Unknown]
  - Sleep disorder [Unknown]
  - Insomnia [Unknown]
  - Nightmare [Unknown]
  - Influenza [Unknown]
  - Extra dose administered [Unknown]
  - Memory impairment [Unknown]
  - Gait disturbance [Unknown]
  - Parasomnia [Unknown]
  - Anterograde amnesia [Unknown]
  - Drug interaction [Unknown]
  - Road traffic accident [None]

NARRATIVE: CASE EVENT DATE: 20140522
